FAERS Safety Report 18415573 (Version 2)
Quarter: 2020Q4

REPORT INFORMATION
  Report Type: Report from Study
  Country: AE (occurrence: AE)
  Receive Date: 20201022
  Receipt Date: 20201110
  Transmission Date: 20210114
  Serious: Yes (Other)
  Sender: FDA-Public Use
  Company Number: NVSC2020AE284184

PATIENT
  Age: 46 Year
  Sex: Male

DRUGS (1)
  1. AFINITOR [Suspect]
     Active Substance: EVEROLIMUS
     Indication: PRIMITIVE NEUROECTODERMAL TUMOUR
     Dosage: 5 MG, QD
     Route: 048
     Dates: start: 20190618

REACTIONS (2)
  - Hepatic lesion [Recovering/Resolving]
  - Pancreatic mass [Recovering/Resolving]

NARRATIVE: CASE EVENT DATE: 202009
